FAERS Safety Report 4310974-5 (Version None)
Quarter: 2004Q1

REPORT INFORMATION
  Report Type: 
  Country: None (occurrence: None)
  Receive Date: 20040304
  Receipt Date: 20040225
  Transmission Date: 20041129
  Serious: Yes (Death)
  Sender: FDA-Public Use
  Company Number: PHBS2004US02726

PATIENT
  Age: 12 Year
  Sex: Male

DRUGS (5)
  1. CYCLOSPORINE [Suspect]
     Indication: BONE MARROW TRANSPLANT
     Route: 065
  2. CYTOXAN [Suspect]
  3. ARA-C [Suspect]
     Indication: BONE MARROW TRANSPLANT
     Route: 065
  4. IRRADIATION [Suspect]
  5. ATGAM [Suspect]

REACTIONS (3)
  - EPSTEIN-BARR VIRUS INFECTION [None]
  - LYMPHOPROLIFERATIVE DISORDER [None]
  - PSEUDOMONAL SEPSIS [None]
